FAERS Safety Report 4978263-3 (Version None)
Quarter: 2006Q2

REPORT INFORMATION
  Report Type: 
  Country: None (occurrence: None)
  Receive Date: 20060420
  Receipt Date: 20060417
  Transmission Date: 20061013
  Serious: Yes (Other)
  Sender: FDA-Public Use
  Company Number: US-GLAXOSMITHKLINE-A0602082A

PATIENT
  Age: 48 Year
  Sex: Female

DRUGS (5)
  1. SIMPLE HEADACHE + MUSCULAR PAIN PWR [Suspect]
  2. DIOVAN HCT [Concomitant]
  3. WOMEN'S ULTRA MEGA VITAMIN + MINERAL [Concomitant]
  4. GERITOL COMPLETE [Concomitant]
  5. VESICARE [Concomitant]

REACTIONS (3)
  - DEPENDENCE [None]
  - POLLAKIURIA [None]
  - WEIGHT DECREASED [None]
